FAERS Safety Report 20213269 (Version 1)
Quarter: 2021Q4

REPORT INFORMATION
  Report Type: Spontaneous
  Country: US (occurrence: US)
  Receive Date: 20211221
  Receipt Date: 20211221
  Transmission Date: 20220303
  Serious: Yes (Other)
  Sender: FDA-Public Use
  Company Number: US-PFIZER INC-202101741869

PATIENT
  Age: 68 Year
  Sex: Female

DRUGS (1)
  1. AROMASIN [Suspect]
     Active Substance: EXEMESTANE
     Dosage: 25 MG

REACTIONS (6)
  - Intraductal proliferative breast lesion [Unknown]
  - Necrosis [Unknown]
  - HER2 positive breast cancer [Unknown]
  - Calcification metastatic [Unknown]
  - Oestrogen receptor assay positive [Unknown]
  - Progesterone receptor assay positive [Unknown]

NARRATIVE: CASE EVENT DATE: 20190101
